FAERS Safety Report 5452814-7 (Version None)
Quarter: 2007Q3

REPORT INFORMATION
  Report Type: 
  Country: None (occurrence: None)
  Receive Date: 20070914
  Receipt Date: 20070904
  Transmission Date: 20080115
  Serious: Yes (Other)
  Sender: FDA-Public Use
  Company Number: DK-ELI_LILLY_AND_COMPANY-DK200708002151

PATIENT
  Age: 9 Year
  Sex: Male
  Weight: 35 kg

DRUGS (5)
  1. STRATTERA [Suspect]
     Indication: ATTENTION DEFICIT/HYPERACTIVITY DISORDER
     Dosage: 36 MG, UNKNOWN
     Route: 065
     Dates: start: 20060113
  2. STRATTERA [Suspect]
     Dosage: 18 MG, UNKNOWN
     Route: 065
     Dates: start: 20060106, end: 20060101
  3. STRATTERA [Suspect]
     Dosage: 40 MG, UNKNOWN
     Route: 065
     Dates: start: 20060224
  4. STRATTERA [Suspect]
     Dosage: 50 MG, UNKNOWN
     Route: 065
     Dates: start: 20070305
  5. STRATTERA [Suspect]
     Dosage: 40 MG, UNKNOWN
     Route: 065
     Dates: start: 20070401

REACTIONS (3)
  - DEPRESSED MOOD [None]
  - INTENTIONAL SELF-INJURY [None]
  - SUICIDAL IDEATION [None]
